FAERS Safety Report 9361335 (Version 1)
Quarter: 2013Q2

REPORT INFORMATION
  Report Type: Report from Study
  Country: US (occurrence: US)
  Receive Date: 20130621
  Receipt Date: 20130621
  Transmission Date: 20140414
  Serious: Yes (Hospitalization, Other)
  Sender: FDA-Public Use
  Company Number: US-PFIZER INC-2013165848

PATIENT
  Age: 4 Year
  Sex: 0
  Weight: 16.78 kg

DRUGS (1)
  1. IBUPROFEN [Suspect]
     Dosage: 50 MG / 5 ML
     Route: 048

REACTIONS (3)
  - Pneumonia [Unknown]
  - Pharyngitis [Unknown]
  - Dehydration [Unknown]
